FAERS Safety Report 13967661 (Version 1)
Quarter: 2017Q3

REPORT INFORMATION
  Report Type: Spontaneous
  Country: CA (occurrence: CA)
  Receive Date: 20170914
  Receipt Date: 20170914
  Transmission Date: 20171128
  Serious: Yes (Hospitalization)
  Sender: FDA-Public Use
  Company Number: CA-SUN PHARMACEUTICAL INDUSTRIES LTD-2017US-149870

PATIENT
  Sex: Male

DRUGS (4)
  1. DIGOXIN. [Suspect]
     Active Substance: DIGOXIN
     Indication: INFERTILITY MALE
     Dosage: UNK UNK, QD
     Route: 048
  2. LITHIUM. [Concomitant]
     Active Substance: LITHIUM
     Indication: BIPOLAR DISORDER
     Dosage: UNK
     Route: 065
  3. MYCOPHENOLATE [Suspect]
     Active Substance: MYCOPHENOLIC ACID
     Indication: INFERTILITY MALE
     Dosage: UNK UNK, QD
     Route: 048
  4. PHENETHYLAMINE [Suspect]
     Active Substance: PHENETHYLAMINE
     Indication: INFERTILITY MALE
     Dosage: UNK UNK, QD
     Route: 048

REACTIONS (4)
  - Cardiac failure [Unknown]
  - Atrioventricular block complete [Unknown]
  - Toxicity to various agents [Unknown]
  - Myocarditis [Unknown]
